FAERS Safety Report 7416369-X (Version None)
Quarter: 2011Q2

REPORT INFORMATION
  Report Type: 
  Country: None (occurrence: None)
  Receive Date: 20110414
  Receipt Date: 20110405
  Transmission Date: 20111010
  Serious: Yes (Other)
  Sender: FDA-Public Use
  Company Number: US-ASTRAZENECA-2011SE19251

PATIENT
  Age: 35 Year
  Sex: Male
  Weight: 95.7 kg

DRUGS (9)
  1. DILAUDID [Concomitant]
  2. SEROQUEL XR [Suspect]
     Indication: BIPOLAR DISORDER
     Route: 048
     Dates: start: 20090101
  3. PRILOSEC [Concomitant]
  4. MORPHINE [Concomitant]
  5. KEPPRA [Concomitant]
  6. COMPAZINE [Concomitant]
  7. MAGIC MOUTHWASH [Concomitant]
  8. XANAX [Concomitant]
  9. PREDNISONE [Concomitant]

REACTIONS (1)
  - LYMPHOMA [None]
